FAERS Safety Report 9171391 (Version 2)
Quarter: 2013Q3

REPORT INFORMATION
  Report Type: Report from Study
  Country: GB (occurrence: GB)
  Receive Date: 20130319
  Receipt Date: 20130717
  Transmission Date: 20140515
  Serious: Yes (Other)
  Sender: FDA-Public Use
  Company Number: GB-ROCHE-1190798

PATIENT
  Age: 73 Year
  Sex: Male
  Weight: 75 kg

DRUGS (2)
  1. VEMURAFENIB [Suspect]
     Indication: METASTATIC MALIGNANT MELANOMA
     Dosage: LAST DOSE PRIOR TO SAE:11/MAR/2012
     Route: 048
     Dates: start: 20120206
  2. VEMURAFENIB [Suspect]
     Dosage: LAST DOSE PRIOR TO SAE:23/MAY/2012
     Route: 048
     Dates: start: 20120312

REACTIONS (1)
  - Skin mass [Unknown]
